FAERS Safety Report 6300634-3 (Version None)
Quarter: 2009Q3

REPORT INFORMATION
  Report Type: 
  Country: None (occurrence: None)
  Receive Date: 20090806
  Receipt Date: 20081211
  Transmission Date: 20100115
  Serious: No
  Sender: FDA-Public Use
  Company Number: US-ABBOTT-08P-163-0492399-00

PATIENT
  Sex: Male
  Weight: 65.83 kg

DRUGS (1)
  1. DEPAKOTE ER [Suspect]
     Indication: CONVULSION
     Route: 048
     Dates: start: 20080721

REACTIONS (4)
  - DEHYDRATION [None]
  - DIARRHOEA [None]
  - MEDICATION RESIDUE [None]
  - VISUAL IMPAIRMENT [None]
